FAERS Safety Report 9682552 (Version 1)
Quarter: 2013Q4

REPORT INFORMATION
  Report Type: Spontaneous
  Country: FR (occurrence: FR)
  Receive Date: 20131112
  Receipt Date: 20131112
  Transmission Date: 20140711
  Serious: Yes (Hospitalization)
  Sender: FDA-Public Use
  Company Number: FR-ASTRAZENECA-2013SE81934

PATIENT
  Age: 26070 Day
  Sex: Male

DRUGS (3)
  1. CRESTOR [Suspect]
     Route: 048
     Dates: end: 20131013
  2. BRILIQUE [Suspect]
     Route: 048
     Dates: start: 201305
  3. KARDEGIC [Concomitant]
     Dosage: LONG-RUN TREATMENT

REACTIONS (1)
  - Eosinophilic fasciitis [Not Recovered/Not Resolved]
